FAERS Safety Report 4289319-5 (Version None)
Quarter: 2004Q1

REPORT INFORMATION
  Report Type: 
  Country: None (occurrence: None)
  Receive Date: 20040206
  Receipt Date: 20040129
  Transmission Date: 20041129
  Serious: Yes (Hospitalization)
  Sender: FDA-Public Use
  Company Number: 2003174144JP

PATIENT
  Age: 74 Year
  Sex: Male

DRUGS (21)
  1. CAMPTOSAR [Suspect]
     Indication: LUNG SQUAMOUS CELL CARCINOMA STAGE UNSPECIFIED
     Dosage: 100 MG, CYCLIC, IV DRIP
     Route: 041
     Dates: start: 20030618, end: 20030618
  2. CAMPTOSAR [Suspect]
     Indication: LUNG SQUAMOUS CELL CARCINOMA STAGE UNSPECIFIED
     Dosage: 100 MG, CYCLIC, IV DRIP
     Route: 041
     Dates: start: 20030702, end: 20030702
  3. CRAVITEL(LEVOFLOXACIN) [Suspect]
     Dosage: 300 MG, ORAL
     Route: 048
     Dates: start: 20030710, end: 20030714
  4. RANDA(CISPLATIN)INJECTION [Suspect]
     Indication: LUNG SQUAMOUS CELL CARCINOMA STAGE UNSPECIFIED
     Dosage: 130 MG, IV DRIP
     Route: 041
     Dates: start: 20030618, end: 20030618
  5. MODACIN (CEFTAZIDIME)INJECTION [Suspect]
     Indication: INFECTION
     Dosage: 1-2 G, CYCLIC, IV
     Route: 042
     Dates: start: 20030625, end: 20030727
  6. GRAN (FILGRASTIM)INJECTION [Suspect]
     Indication: NEUTROPENIA
     Dosage: 75 UG, CYCLIC, SUBCUTANEOUS
     Route: 058
     Dates: start: 20030701, end: 20030708
  7. ADONA (CARBAMAZOCHROME SODIUM SULFONATE) [Concomitant]
  8. TRANSAMIN [Concomitant]
  9. DIPYRIDAMOLE [Concomitant]
  10. LASIX [Concomitant]
  11. MANNITOL [Concomitant]
  12. THEOLONG [Concomitant]
  13. MYONAL (EPERISONE HYDROCHLORIDE) [Concomitant]
  14. VOLTAREN [Concomitant]
  15. MAINTATE [Concomitant]
  16. HERBESSER [Concomitant]
  17. MEPTIN (PROCATEROL HYDROCHALORIDE) [Concomitant]
  18. PROTECADIN [Concomitant]
  19. GASTROM (ECABET MONOSODIUM) [Concomitant]
  20. GLUCOBAY [Concomitant]
  21. EPINASTINE (EPINASTINE) [Concomitant]

REACTIONS (8)
  - C-REACTIVE PROTEIN INCREASED [None]
  - DRUG INEFFECTIVE [None]
  - INJECTION SITE INFECTION [None]
  - INTERSTITIAL LUNG DISEASE [None]
  - NEUTROPENIA [None]
  - PNEUMONIA [None]
  - PYREXIA [None]
  - WOUND INFECTION [None]
